FAERS Safety Report 4580549-1 (Version None)
Quarter: 2005Q1

REPORT INFORMATION
  Report Type: 
  Country: None (occurrence: None)
  Receive Date: 20050214
  Receipt Date: 20040408
  Transmission Date: 20050727
  Serious: No
  Sender: FDA-Public Use
  Company Number: US-GLAXOSMITHKLINE-A0506363A

PATIENT
  Age: 52 Year
  Sex: Male

DRUGS (6)
  1. LAMICTAL [Suspect]
     Indication: BIPOLAR DISORDER
     Dosage: 100MG TWICE PER DAY
     Route: 048
     Dates: start: 20031201
  2. LITHIUM [Concomitant]
  3. NORVASC [Concomitant]
  4. LIPITOR [Concomitant]
  5. WELLBUTRIN [Concomitant]
  6. INDERAL [Concomitant]

REACTIONS (1)
  - HEADACHE [None]
